FAERS Safety Report 5854438-6 (Version None)
Quarter: 2008Q3

REPORT INFORMATION
  Report Type: 
  Country: None (occurrence: None)
  Receive Date: 20080822
  Receipt Date: 20080811
  Transmission Date: 20090109
  Serious: Yes (Life-Threatening, Hospitalization)
  Sender: FDA-Public Use
  Company Number: CH-GILEAD-2008-0017495

PATIENT
  Age: 65 Year
  Sex: Male

DRUGS (5)
  1. VIREAD [Suspect]
     Indication: HEPATITIS B
     Route: 048
     Dates: start: 20080702
  2. TRUVADA [Suspect]
     Route: 048
     Dates: end: 20080702
  3. 3TC [Suspect]
     Indication: HEPATITIS B
     Route: 048
     Dates: start: 20080702
  4. SANDIMMUNE [Suspect]
     Indication: LIVER TRANSPLANT
     Route: 048
     Dates: start: 20071121, end: 20080704
  5. PREDNISONE TAB [Concomitant]
     Indication: LIVER TRANSPLANT
     Route: 048

REACTIONS (3)
  - ACUTE HEPATIC FAILURE [None]
  - PANCREATITIS [None]
  - TRANSPLANT REJECTION [None]
